FAERS Safety Report 10176215 (Version 2)
Quarter: 2014Q2

REPORT INFORMATION
  Report Type: Spontaneous
  Country: DE (occurrence: DE)
  Receive Date: 20140516
  Receipt Date: 20140611
  Transmission Date: 20141212
  Serious: Yes (Hospitalization, Other)
  Sender: FDA-Public Use
  Company Number: DE-RANBAXY-2014US-80983

PATIENT
  Age: 74 Year
  Sex: Female
  Weight: 60 kg

DRUGS (7)
  1. IBUPROFEN [Suspect]
     Indication: PRODUCT USED FOR UNKNOWN INDICATION
     Dosage: 1800 MG, DAILY
     Route: 065
     Dates: start: 201404
  2. LORMETAZEPAM [Suspect]
     Indication: PRODUCT USED FOR UNKNOWN INDICATION
     Dosage: 1.2 MG, DAILY
     Route: 065
     Dates: start: 201404
  3. ZOPICLONE [Suspect]
     Indication: PRODUCT USED FOR UNKNOWN INDICATION
     Dosage: 7.5 MG, DAILY
     Route: 065
     Dates: start: 201404
  4. ALCOHOL [Suspect]
     Indication: PRODUCT USED FOR UNKNOWN INDICATION
     Dosage: UNK
     Route: 065
     Dates: start: 201404
  5. PANTOZOL [Suspect]
     Indication: PRODUCT USED FOR UNKNOWN INDICATION
     Dosage: 40 MG, DAILY
     Route: 065
     Dates: start: 201404
  6. TILIDIN COMP ^ALIUD PHARMA^ [Suspect]
     Indication: PRODUCT USED FOR UNKNOWN INDICATION
     Dosage: 1 DF, DAILY
     Route: 065
     Dates: start: 201404
  7. ISOPTIN [Suspect]
     Indication: PRODUCT USED FOR UNKNOWN INDICATION
     Dosage: 1 DF, DAILY
     Route: 065
     Dates: start: 201404

REACTIONS (7)
  - Tendon rupture [Unknown]
  - Suicide attempt [Unknown]
  - Toxicity to various agents [Unknown]
  - Alcohol poisoning [Unknown]
  - Hypertension [Unknown]
  - Insomnia [Unknown]
  - Somnolence [Recovering/Resolving]
